FAERS Safety Report 7599955-6 (Version None)
Quarter: 2011Q3

REPORT INFORMATION
  Report Type: 
  Country: None (occurrence: None)
  Receive Date: 20110711
  Receipt Date: 20110707
  Transmission Date: 20111222
  Serious: No
  Sender: FDA-Public Use
  Company Number: US-PFIZER INC-2011152431

PATIENT
  Age: 4 Year
  Sex: Female

DRUGS (1)
  1. CHILDREN'S ADVIL [Suspect]
     Dosage: UNK

REACTIONS (1)
  - RASH [None]
